FAERS Safety Report 12581416 (Version 3)
Quarter: 2016Q3

REPORT INFORMATION
  Report Type: Spontaneous
  Country: US (occurrence: US)
  Receive Date: 20160721
  Receipt Date: 20160816
  Transmission Date: 20161109
  Serious: Yes (Other)
  Sender: FDA-Public Use
  Company Number: US-GILEAD-2016-0224204

PATIENT
  Age: 72 Year
  Sex: Male
  Weight: 64.85 kg

DRUGS (3)
  1. RITUXAN [Concomitant]
     Active Substance: RITUXIMAB
     Route: 065
  2. ZYDELIG [Suspect]
     Active Substance: IDELALISIB
     Dosage: 150 MG, QD
     Route: 065
  3. ZYDELIG [Suspect]
     Active Substance: IDELALISIB
     Indication: CHRONIC LYMPHOCYTIC LEUKAEMIA
     Dosage: 150 MG, BID
     Route: 065
     Dates: start: 201602

REACTIONS (10)
  - Clostridium difficile infection [Recovering/Resolving]
  - Fatigue [Unknown]
  - Vomiting [Unknown]
  - Interstitial lung disease [Unknown]
  - Nausea [Unknown]
  - Blood bilirubin increased [Unknown]
  - Asthenia [Unknown]
  - Decreased appetite [Unknown]
  - Weight decreased [Unknown]
  - Off label use [Unknown]

NARRATIVE: CASE EVENT DATE: 20160718
